FAERS Safety Report 4423417-8 (Version None)
Quarter: 2004Q3

REPORT INFORMATION
  Report Type: 
  Country: None (occurrence: None)
  Receive Date: 20040806
  Receipt Date: 20040723
  Transmission Date: 20050211
  Serious: Yes (Hospitalization)
  Sender: FDA-Public Use
  Company Number: FR-JNJFOC-20040706523

PATIENT
  Age: 50 Year
  Sex: Female

DRUGS (1)
  1. IXPRIM (TRAMADOL/APAP) [Suspect]
     Indication: DRUG USE FOR UNKNOWN INDICATION
     Dosage: 1 DOSE (S), 1 IN 1 DAY, ORAL
     Route: 048
     Dates: start: 20040601, end: 20040623

REACTIONS (3)
  - CONFUSIONAL STATE [None]
  - MUSCULAR WEAKNESS [None]
  - THIRST [None]
